FAERS Safety Report 7231028-4 (Version None)
Quarter: 2011Q1

REPORT INFORMATION
  Report Type: 
  Country: None (occurrence: None)
  Receive Date: 20110118
  Receipt Date: 20110114
  Transmission Date: 20110831
  Serious: Yes (Death, Hospitalization)
  Sender: FDA-Public Use
  Company Number: US-JNJFOC-20110103966

PATIENT
  Age: 35 Year
  Sex: Female

DRUGS (4)
  1. TETRAHYDROCANNABINOL [Suspect]
     Indication: PRODUCT USED FOR UNKNOWN INDICATION
     Route: 065
  2. ULTRAM [Suspect]
     Indication: PRODUCT USED FOR UNKNOWN INDICATION
     Route: 065
  3. BENZODIAZEPINES NOS [Suspect]
     Indication: PRODUCT USED FOR UNKNOWN INDICATION
     Route: 065
  4. BUPROPION [Suspect]
     Indication: PRODUCT USED FOR UNKNOWN INDICATION
     Route: 065

REACTIONS (6)
  - STATUS EPILEPTICUS [None]
  - DELIRIUM [None]
  - MULTIPLE DRUG OVERDOSE [None]
  - TACHYCARDIA [None]
  - AGITATION [None]
  - COMA [None]
